FAERS Safety Report 13449451 (Version 1)
Quarter: 2017Q2

REPORT INFORMATION
  Report Type: Not Available
  Country: None (occurrence: US)
  Receive Date: 20170417
  Receipt Date: 20170417
  Transmission Date: 20170830
  Serious: No
  Sender: FDA-Public Use
  Company Number: US-AKORN-50018

PATIENT

DRUGS (1)
  1. PROPARACAINE [Suspect]
     Active Substance: PROPARACAINE

REACTIONS (1)
  - Drug ineffective [None]
